FAERS Safety Report 4308359-0 (Version None)
Quarter: 2004Q1

REPORT INFORMATION
  Report Type: 
  Country: None (occurrence: None)
  Receive Date: 20040301
  Receipt Date: 20040219
  Transmission Date: 20041129
  Serious: Yes (Hospitalization, Other)
  Sender: FDA-Public Use
  Company Number: PHBS2004US02605

PATIENT
  Age: 39 Year
  Sex: Male

DRUGS (8)
  1. ZOLEDRONIC ACID [Suspect]
     Indication: METASTASES TO BONE
     Dosage: 4 MG, QMO
  2. OCTREOTIDE, LONG ACTING [Suspect]
     Indication: CARCINOID SYNDROME
     Dosage: 20 MG, QMO
     Route: 030
  3. INTERFERON ALFA [Suspect]
     Indication: CARCINOID TUMOUR
     Dosage: 6 MIU, TIW
     Route: 058
  4. RADIATION [Concomitant]
  5. LORATADINE [Concomitant]
  6. MEGESTROL ACETATE [Concomitant]
  7. FENTANYL [Concomitant]
     Route: 062
  8. TESTOSTERONE [Concomitant]

REACTIONS (19)
  - BLOOD CREATININE INCREASED [None]
  - BLOOD PARATHYROID HORMONE INCREASED [None]
  - BLOOD PHOSPHORUS INCREASED [None]
  - BLOOD URIC ACID INCREASED [None]
  - CARCINOID TUMOUR [None]
  - CONFUSIONAL STATE [None]
  - DEHYDRATION [None]
  - DISORIENTATION [None]
  - ELECTROCARDIOGRAM ABNORMAL [None]
  - ELECTROCARDIOGRAM QT PROLONGED [None]
  - ELECTROCARDIOGRAM T WAVE PEAKED [None]
  - HYPERKALAEMIA [None]
  - HYPOCALCAEMIA [None]
  - INFLUENZA LIKE ILLNESS [None]
  - LETHARGY [None]
  - MALIGNANT NEOPLASM PROGRESSION [None]
  - RENAL FAILURE ACUTE [None]
  - URINARY CASTS [None]
  - WHITE BLOOD CELLS URINE POSITIVE [None]
